FAERS Safety Report 9046824 (Version 2)
Quarter: 2013Q1

REPORT INFORMATION
  Report Type: Spontaneous
  Country: US (occurrence: US)
  Receive Date: 20130204
  Receipt Date: 20130318
  Transmission Date: 20140127
  Serious: No
  Sender: FDA-Public Use
  Company Number: US-BIOGENIDEC-2013BI008332

PATIENT
  Age: 49 None
  Sex: Female

DRUGS (2)
  1. AVONEX [Suspect]
     Indication: MULTIPLE SCLEROSIS
     Route: 030
     Dates: start: 20110414, end: 20111023
  2. ADVIL [Concomitant]

REACTIONS (13)
  - Weight decreased [Recovered/Resolved]
  - Liver disorder [Not Recovered/Not Resolved]
  - Memory impairment [Not Recovered/Not Resolved]
  - Stress [Not Recovered/Not Resolved]
  - Macrocytosis [Unknown]
  - Cold type haemolytic anaemia [Unknown]
  - Abdominal pain upper [Not Recovered/Not Resolved]
  - Ocular icterus [Unknown]
  - Hepatic pain [Unknown]
  - Influenza like illness [Recovered/Resolved]
  - Anaemia [Recovered/Resolved]
  - Hyperthyroidism [Recovered/Resolved]
  - Hypothyroidism [Not Recovered/Not Resolved]
